FAERS Safety Report 21147442 (Version 1)
Quarter: 2022Q3

REPORT INFORMATION
  Report Type: Spontaneous
  Country: US (occurrence: None)
  Receive Date: 20220728
  Receipt Date: 20220728
  Transmission Date: 20221027
  Serious: Yes (Life-Threatening, Hospitalization)
  Sender: FDA-Public Use
  Company Number: None

PATIENT
  Age: 52 Year
  Sex: Female

DRUGS (1)
  1. LITHIUM [Suspect]
     Active Substance: LITHIUM

REACTIONS (9)
  - Nausea [None]
  - Vomiting [None]
  - Diarrhoea [None]
  - Dysarthria [None]
  - Confusional state [None]
  - Diabetic ketoacidosis [None]
  - Small intestinal obstruction [None]
  - Diabetes insipidus [None]
  - Blood sodium increased [None]

NARRATIVE: CASE EVENT DATE: 20220309
